FAERS Safety Report 6939387-4 (Version None)
Quarter: 2010Q3

REPORT INFORMATION
  Report Type: 
  Country: None (occurrence: None)
  Receive Date: 20100819
  Receipt Date: 20100813
  Transmission Date: 20110219
  Serious: Yes (Hospitalization)
  Sender: FDA-Public Use
  Company Number: 2010SP041577

PATIENT
  Age: 75 Year
  Sex: Female

DRUGS (5)
  1. SAPHRIS [Suspect]
     Indication: BIPOLAR I DISORDER
     Dosage: 5 MG;HS;SL
     Route: 060
     Dates: start: 20100529, end: 20100531
  2. SEROQUEL [Suspect]
     Indication: PRODUCT USED FOR UNKNOWN INDICATION
     Dosage: 800 MG; 200 MG; QD
  3. LORAZEPAM [Concomitant]
  4. EFFEXOR [Concomitant]
  5. SIMVASTATIN [Concomitant]

REACTIONS (9)
  - ARTERIOSCLEROSIS [None]
  - BIPOLAR I DISORDER [None]
  - CAROTID ARTERY STENOSIS [None]
  - CEREBRAL INFARCTION [None]
  - COGNITIVE DISORDER [None]
  - DRUG INEFFECTIVE [None]
  - GOITRE [None]
  - ISCHAEMIC STROKE [None]
  - LEFT VENTRICULAR HYPERTROPHY [None]
